FAERS Safety Report 10101478 (Version 5)
Quarter: 2014Q2

REPORT INFORMATION
  Report Type: Spontaneous
  Country: JP (occurrence: JP)
  Receive Date: 20140424
  Receipt Date: 20140529
  Transmission Date: 20141212
  Serious: Yes (Life-Threatening, Hospitalization)
  Sender: FDA-Public Use
  Company Number: JP-SA-2014SA031032

PATIENT
  Age: 52 Year
  Sex: Male
  Weight: 64.8 kg

DRUGS (7)
  1. LANTUS [Suspect]
     Indication: DIABETES MELLITUS
     Dosage: DOSE:4 UNIT(S)
     Route: 058
     Dates: start: 20140228, end: 20140304
  2. ACTOS [Suspect]
     Indication: DIABETES MELLITUS
     Route: 048
     Dates: start: 20140213, end: 20140307
  3. ALL OTHER THERAPEUTIC PRODUCTS [Suspect]
     Indication: HYPERLIPIDAEMIA
     Route: 048
     Dates: start: 20140213, end: 20140307
  4. SOLOSTAR [Concomitant]
  5. AMLODIPINE BESILATE [Concomitant]
     Indication: HYPERTENSION
     Route: 048
     Dates: start: 20140203
  6. LOXONIN [Concomitant]
     Indication: SPINAL OSTEOARTHRITIS
     Route: 048
     Dates: start: 20140213, end: 20140220
  7. MUCOSTA [Concomitant]
     Indication: ILL-DEFINED DISORDER
     Route: 048
     Dates: start: 20140213, end: 20140220

REACTIONS (6)
  - Hepatic function abnormal [Recovered/Resolved]
  - Pyrexia [Recovered/Resolved]
  - Headache [Recovered/Resolved]
  - Thirst [Recovered/Resolved]
  - Jaundice [Recovered/Resolved]
  - Platelet count decreased [Recovered/Resolved]
